FAERS Safety Report 7937097-8 (Version None)
Quarter: 2011Q4

REPORT INFORMATION
  Report Type: 
  Country: None (occurrence: None)
  Receive Date: 20111123
  Receipt Date: 20111122
  Transmission Date: 20120403
  Serious: Yes (Life-Threatening, Hospitalization)
  Sender: FDA-Public Use
  Company Number: US-JNJFOC-20111107195

PATIENT
  Sex: Male

DRUGS (20)
  1. REVLIMID [Suspect]
     Route: 048
     Dates: start: 20100927, end: 20110701
  2. LASIX [Concomitant]
     Route: 065
  3. PREDNISONE TAB [Concomitant]
     Route: 065
  4. DOXIL [Suspect]
     Indication: PRODUCT USED FOR UNKNOWN INDICATION
     Route: 042
  5. COREG [Concomitant]
     Route: 065
  6. FLONASE [Concomitant]
     Route: 065
  7. ZOMETA [Concomitant]
     Route: 065
  8. ONDANSETRON [Concomitant]
     Route: 065
  9. POTASSIUM CHLORIDE [Concomitant]
     Route: 065
  10. PROCHLORPERAZINE [Concomitant]
     Route: 065
  11. PROTONIX [Concomitant]
     Route: 065
  12. VICODIN [Concomitant]
     Route: 065
  13. REVLIMID [Suspect]
     Indication: MULTIPLE MYELOMA
     Route: 048
     Dates: end: 20110801
  14. FLUCONAZOLE [Concomitant]
     Route: 065
  15. LOVENOX [Concomitant]
     Route: 065
  16. MEPRON [Concomitant]
     Route: 065
  17. DECADRON [Suspect]
     Indication: PRODUCT USED FOR UNKNOWN INDICATION
     Route: 065
  18. ATIVAN [Concomitant]
     Route: 065
  19. GABAPENTIN [Concomitant]
     Route: 065
  20. VELCADE [Suspect]
     Indication: PRODUCT USED FOR UNKNOWN INDICATION
     Route: 042

REACTIONS (2)
  - PNEUMOCYSTIS JIROVECI PNEUMONIA [None]
  - INTERSTITIAL LUNG DISEASE [None]
